FAERS Safety Report 6681239-1 (Version None)
Quarter: 2010Q2

REPORT INFORMATION
  Report Type: 
  Country: None (occurrence: None)
  Receive Date: 20100414
  Receipt Date: 20090603
  Transmission Date: 20101027
  Serious: No
  Sender: FDA-Public Use
  Company Number: US-KINGPHARMUSA00001-K200900675

PATIENT
  Sex: Female

DRUGS (4)
  1. SKELAXIN [Suspect]
     Indication: MYALGIA
     Dosage: UNK
     Dates: start: 20070101, end: 20080101
  2. SKELAXIN [Suspect]
     Indication: MUSCLE SPASMS
  3. LASIX [Concomitant]
     Indication: EYE SWELLING
  4. GLEEVEC [Concomitant]
     Indication: CHRONIC MYELOID LEUKAEMIA

REACTIONS (1)
  - DRUG INEFFECTIVE [None]
